FAERS Safety Report 22528565 (Version 1)
Quarter: 2023Q2

REPORT INFORMATION
  Report Type: Spontaneous
  Country: US (occurrence: US)
  Receive Date: 20230607
  Receipt Date: 20230607
  Transmission Date: 20230722
  Serious: Yes (Other)
  Sender: FDA-Public Use
  Company Number: US-SLATE RUN PHARMACEUTICALS-23US001614

PATIENT

DRUGS (2)
  1. BUPROPION HYDROCHLORIDE [Suspect]
     Active Substance: BUPROPION HYDROCHLORIDE
     Indication: Product used for unknown indication
     Dosage: 150 MILLIGRAM
     Dates: start: 20230513
  2. BUPROPION HYDROCHLORIDE [Concomitant]
     Active Substance: BUPROPION HYDROCHLORIDE
     Indication: Product used for unknown indication
     Dosage: 150 MILLIGRAM

REACTIONS (14)
  - Suicidal ideation [Unknown]
  - Product substitution issue [Unknown]
  - Head discomfort [Not Recovered/Not Resolved]
  - Apathy [Unknown]
  - Crying [Recovered/Resolved]
  - Brain fog [Not Recovered/Not Resolved]
  - Hypoaesthesia [Unknown]
  - Feeling abnormal [Unknown]
  - Dizziness [Not Recovered/Not Resolved]
  - Depressed mood [Unknown]
  - Headache [Unknown]
  - Paranoia [Unknown]
  - Anxiety [Unknown]
  - Negative thoughts [Recovered/Resolved]

NARRATIVE: CASE EVENT DATE: 20230527
